FAERS Safety Report 6703582-X (Version None)
Quarter: 2010Q2

REPORT INFORMATION
  Report Type: 
  Country: None (occurrence: None)
  Receive Date: 20100430
  Receipt Date: 20100419
  Transmission Date: 20101027
  Serious: Yes (Death, Other)
  Sender: FDA-Public Use
  Company Number: JP-PFIZER INC-2010053491

PATIENT
  Age: 66 Year
  Sex: Male
  Weight: 50 kg

DRUGS (4)
  1. CAMPTOSAR [Suspect]
     Indication: COLORECTAL CANCER
     Dosage: 150 MG/M2, 228MG/BODY
     Route: 041
     Dates: start: 20091215, end: 20100217
  2. CALCIUM LEVOFOLINATE [Concomitant]
     Indication: COLORECTAL CANCER
     Dosage: 200 MG/M2, 304MG/BODY
     Route: 041
     Dates: start: 20091215, end: 20100217
  3. FLUOROURACIL [Concomitant]
     Indication: COLORECTAL CANCER
     Dosage: 400 MG/M2, 608MG/BODY
     Route: 040
     Dates: start: 20091215, end: 20100217
  4. FLUOROURACIL [Concomitant]
     Dosage: 2400 MG/M2 3648 MG/BODY/D1-2
     Route: 041
     Dates: start: 20091215, end: 20100217

REACTIONS (3)
  - LEUKOPENIA [None]
  - NEUTROPENIA [None]
  - PYREXIA [None]
